FAERS Safety Report 9981808 (Version 1)
Quarter: 2014Q1

REPORT INFORMATION
  Report Type: Spontaneous
  Country: US (occurrence: US)
  Receive Date: 20140307
  Receipt Date: 20140307
  Transmission Date: 20141002
  Serious: Yes (Other)
  Sender: FDA-Public Use
  Company Number: US-ABBVIE-13P-163-1181636-00

PATIENT
  Sex: Female
  Weight: 129.39 kg

DRUGS (5)
  1. HUMIRA [Suspect]
     Indication: CROHN^S DISEASE
     Dates: start: 2010
  2. METHYLDOPA [Concomitant]
     Indication: HYPERTENSION
  3. BABY ASPIRIN [Concomitant]
     Indication: GESTATIONAL HYPERTENSION
     Dates: start: 201306
  4. BABY ASPIRIN [Concomitant]
     Indication: PROPHYLAXIS
  5. PRENATAL VITAMINS [Concomitant]
     Indication: PRODUCT USED FOR UNKNOWN INDICATION

REACTIONS (4)
  - Oedema peripheral [Not Recovered/Not Resolved]
  - Infertility [Recovered/Resolved]
  - Amenorrhoea [Not Recovered/Not Resolved]
  - Hypertension [Not Recovered/Not Resolved]
